FAERS Safety Report 20910650 (Version 1)
Quarter: 2022Q2

REPORT INFORMATION
  Report Type: Other
  Country: CN (occurrence: None)
  Receive Date: 20220603
  Receipt Date: 20220603
  Transmission Date: 20220720
  Serious: Yes (Other)
  Sender: FDA-Public Use
  Company Number: CN-ROCHE-3111245

PATIENT
  Sex: Female

DRUGS (3)
  1. TRASTUZUMAB [Suspect]
     Active Substance: TRASTUZUMAB
     Indication: HER2 positive breast cancer
     Dosage: DAY1, THE FIRST DOSE WAS 8 MG/KG, FOLLOWED BY AN ADJUSTED DOSE OF 6 MG/KG. 21 DAYS AS A CYCLE, FOR 6
     Route: 041
  2. DOCETAXEL [Suspect]
     Active Substance: DOCETAXEL
     Indication: HER2 positive breast cancer
     Dosage: DAY1, 21 DAYS AS A CYCLE, FOR 6 CONSECUTIVE CYCLES
     Route: 041
  3. CARBOPLATIN [Suspect]
     Active Substance: CARBOPLATIN
     Indication: HER2 positive breast cancer
     Dosage: DAY1, 21 DAYS AS A CYCLE, FOR 6 CONSECUTIVE CYCLES
     Route: 041

REACTIONS (1)
  - Myelosuppression [Unknown]
